FAERS Safety Report 11861042 (Version 2)
Quarter: 2015Q4

REPORT INFORMATION
  Report Type: Spontaneous
  Country: DE (occurrence: DE)
  Receive Date: 20151222
  Receipt Date: 20151223
  Transmission Date: 20160305
  Serious: Yes (Other)
  Sender: FDA-Public Use
  Company Number: DE-SA-2015SA186171

PATIENT
  Age: 60 Year
  Sex: Female

DRUGS (20)
  1. NOVALGIN [Concomitant]
     Active Substance: METAMIZOLE SODIUM
  2. PALLADON [Concomitant]
     Active Substance: HYDROMORPHONE
  3. METOHEXAL [Concomitant]
     Active Substance: METOPROLOL SUCCINATE
  4. TOUJEO [Suspect]
     Active Substance: INSULIN GLARGINE
     Indication: DIABETES MELLITUS
     Route: 058
     Dates: start: 20151109, end: 20151109
  5. VIGANTOLETTEN [Concomitant]
     Active Substance: CHOLECALCIFEROL
  6. OXAZEPAM. [Concomitant]
     Active Substance: OXAZEPAM
  7. NOVORAPID [Concomitant]
     Active Substance: INSULIN ASPART
     Dosage: BASED ON BLOOD GLUCOSE
  8. TOUJEO [Suspect]
     Active Substance: INSULIN GLARGINE
     Indication: DIABETES MELLITUS
     Route: 058
  9. AMLODIPIN [Concomitant]
     Active Substance: AMLODIPINE BESYLATE
  10. FUROSEMIDE. [Concomitant]
     Active Substance: FUROSEMIDE
  11. MORPHINE SULFATE. [Concomitant]
     Active Substance: MORPHINE SULFATE
  12. ADENURIC [Concomitant]
     Active Substance: FEBUXOSTAT
  13. TEPILTA [Concomitant]
     Active Substance: ALUMINUM HYDROXIDE\MAGNESIUM OXIDE\OXETHAZAINE
     Dosage: SACHET
  14. DEXAMETHASONE. [Concomitant]
     Active Substance: DEXAMETHASONE
  15. INNOHEP [Concomitant]
     Active Substance: TINZAPARIN SODIUM
  16. LYRICA [Concomitant]
     Active Substance: PREGABALIN
  17. XIPAMIDE [Concomitant]
     Active Substance: XIPAMIDE
  18. SOLOSTAR [Concomitant]
     Active Substance: DEVICE
     Indication: DIABETES MELLITUS
  19. L-THYROXIN [Concomitant]
     Active Substance: LEVOTHYROXINE SODIUM
  20. ALDACTONE [Concomitant]
     Active Substance: SPIRONOLACTONE

REACTIONS (4)
  - Dysphagia [Unknown]
  - Rash generalised [Unknown]
  - Abdominal cavity drainage [Unknown]
  - Lip swelling [Recovered/Resolved]

NARRATIVE: CASE EVENT DATE: 201511
